FAERS Safety Report 8932583 (Version 2)
Quarter: 2013Q1

REPORT INFORMATION
  Report Type: Spontaneous
  Country: SE (occurrence: None)
  Receive Date: 20121119
  Receipt Date: 20121214
  Transmission Date: 20140127
  Serious: Yes (Other)
  Sender: FDA-Public Use
  Company Number: DSA_60919_2012

PATIENT
  Sex: Female
  Weight: 48 kg

DRUGS (2)
  1. BUPROPION HYDROCHLORIDE [Suspect]
     Indication: PRODUCT USED FOR UNKNOWN INDICATION
     Dates: start: 20121004
  2. STESOLID [Concomitant]

REACTIONS (6)
  - Suicidal ideation [None]
  - Depression [None]
  - Feeling abnormal [None]
  - Stress [None]
  - Weight decreased [None]
  - Decreased appetite [None]
